FAERS Safety Report 23324924 (Version 1)
Quarter: 2023Q4

REPORT INFORMATION
  Report Type: Report from Study
  Country: EG (occurrence: EG)
  Receive Date: 20231221
  Receipt Date: 20231221
  Transmission Date: 20240109
  Serious: Yes (Death)
  Sender: FDA-Public Use
  Company Number: EG-ABBVIE-5551214

PATIENT
  Age: 74 Year
  Sex: Male

DRUGS (1)
  1. SKYRIZI [Suspect]
     Active Substance: RISANKIZUMAB-RZAA
     Indication: Psoriasis
     Dosage: 2 INJECTION (150MG) AT DAY ZERO
     Route: 058
     Dates: start: 20230603, end: 20230606

REACTIONS (1)
  - Death [Fatal]

NARRATIVE: CASE EVENT DATE: 20231206
